FAERS Safety Report 7728935-2 (Version None)
Quarter: 2011Q3

REPORT INFORMATION
  Report Type: 
  Country: None (occurrence: None)
  Receive Date: 20110831
  Receipt Date: 20110831
  Transmission Date: 20111222
  Serious: No
  Sender: FDA-Public Use
  Company Number: None

PATIENT
  Sex: Female
  Weight: 72.5755 kg

DRUGS (1)
  1. RECLAST [Suspect]
     Indication: BONE DENSITY DECREASED
     Dosage: INFUSION GIVEN AT HOSPITAL 4-20-11
     Dates: start: 20110420

REACTIONS (3)
  - ARTHRALGIA [None]
  - MYALGIA [None]
  - FEELING ABNORMAL [None]
